FAERS Safety Report 7768505-3 (Version None)
Quarter: 2011Q3

REPORT INFORMATION
  Report Type: 
  Country: None (occurrence: None)
  Receive Date: 20110901
  Receipt Date: 20110411
  Transmission Date: 20111222
  Serious: Yes (Disabling, Other)
  Sender: FDA-Public Use
  Company Number: 276528USA

PATIENT
  Sex: Female

DRUGS (6)
  1. METOCLOPRAMIDE [Suspect]
     Indication: IMPAIRED GASTRIC EMPTYING
  2. METOCLOPRAMIDE [Suspect]
     Indication: DYSPEPSIA
  3. METOCLOPRAMIDE [Suspect]
     Indication: ABDOMINAL DISTENSION
  4. METOCLOPRAMIDE [Suspect]
     Indication: DYSPEPSIA
  5. METOCLOPRAMIDE [Suspect]
     Indication: ABDOMINAL DISTENSION
  6. METOCLOPRAMIDE [Suspect]
     Indication: IMPAIRED GASTRIC EMPTYING

REACTIONS (4)
  - MOVEMENT DISORDER [None]
  - EXTRAPYRAMIDAL DISORDER [None]
  - TARDIVE DYSKINESIA [None]
  - NERVOUS SYSTEM DISORDER [None]
